FAERS Safety Report 12726470 (Version 4)
Quarter: 2017Q1

REPORT INFORMATION
  Report Type: Spontaneous
  Country: US (occurrence: US)
  Receive Date: 20160908
  Receipt Date: 20170112
  Transmission Date: 20170428
  Serious: Yes (Hospitalization, Other)
  Sender: FDA-Public Use
  Company Number: US-BEH-2016073273

PATIENT
  Age: 45 Year
  Sex: Female
  Weight: 71.66 kg

DRUGS (1)
  1. HIZENTRA [Suspect]
     Active Substance: HUMAN IMMUNOGLOBULIN G
     Indication: IMMUNODEFICIENCY COMMON VARIABLE
     Dosage: 10 G, BIW
     Route: 058
     Dates: start: 20140311

REACTIONS (3)
  - Crohn^s disease [Unknown]
  - Crohn^s disease [Unknown]
  - Pain [Unknown]

NARRATIVE: CASE EVENT DATE: 20160823
